FAERS Safety Report 4633132-3 (Version None)
Quarter: 2005Q2

REPORT INFORMATION
  Report Type: 
  Country: None (occurrence: None)
  Receive Date: 20050412
  Receipt Date: 20050324
  Transmission Date: 20051028
  Serious: No
  Sender: FDA-Public Use
  Company Number: GB-GLAXOSMITHKLINE-B0375928A

PATIENT
  Sex: Male

DRUGS (6)
  1. AVODART [Suspect]
     Indication: DRUG USE FOR UNKNOWN INDICATION
     Route: 048
     Dates: start: 20050101, end: 20050101
  2. DETRUSITOL [Concomitant]
  3. TAMSULOSIN [Concomitant]
  4. PANTOPRAZOLE SODIUM [Concomitant]
  5. MIRTAZAPINE [Concomitant]
  6. TELFAST [Concomitant]

REACTIONS (3)
  - CHEST PAIN [None]
  - ELECTROCARDIOGRAM ABNORMAL [None]
  - THERAPY NON-RESPONDER [None]
